FAERS Safety Report 8904238 (Version 1)
Quarter: 2012Q4

REPORT INFORMATION
  Report Type: 
  Country: JP (occurrence: JP)
  Receive Date: 20121113
  Receipt Date: 20121113
  Transmission Date: 20130627
  Serious: Yes (Other)
  Sender: FDA-Public Use
  Company Number: PHHY2012JP103819

PATIENT
  Age: 72 Year
  Sex: Male

DRUGS (1)
  1. ZOMETA [Suspect]
     Dosage: 4 mg, UNK
     Route: 041
     Dates: start: 200902, end: 201106

REACTIONS (2)
  - Osteonecrosis of jaw [Unknown]
  - Osteomyelitis [Unknown]
